FAERS Safety Report 9184511 (Version 2)
Quarter: 2013Q2

REPORT INFORMATION
  Report Type: Spontaneous
  Country: SE (occurrence: SE)
  Receive Date: 20130322
  Receipt Date: 20130408
  Transmission Date: 20140414
  Serious: Yes (Other)
  Sender: FDA-Public Use
  Company Number: SE-ROCHE-1204286

PATIENT
  Sex: Female

DRUGS (3)
  1. HERCEPTIN [Suspect]
     Indication: BREAST CANCER
     Route: 065
     Dates: start: 201201, end: 201301
  2. LETROZOLE [Concomitant]
     Route: 065
     Dates: start: 201201, end: 201301
  3. PAMIDRONATE [Concomitant]
     Route: 065
     Dates: start: 201201, end: 201301

REACTIONS (1)
  - Bundle branch block left [Not Recovered/Not Resolved]
